FAERS Safety Report 11664506 (Version 1)
Quarter: 2015Q4

REPORT INFORMATION
  Report Type: Report from Study
  Country: US (occurrence: US)
  Receive Date: 20151027
  Receipt Date: 20151027
  Transmission Date: 20160304
  Serious: No
  Sender: FDA-Public Use
  Company Number: PHEH2015US008073

PATIENT
  Sex: Female

DRUGS (1)
  1. EXJADE [Suspect]
     Active Substance: DEFERASIROX
     Indication: PRODUCT USED FOR UNKNOWN INDICATION
     Dosage: 250 MG AT ONE TABLET BY MOUTH DAILY AND EXJADE 500MG AT 3 TABLETS BY MOUTH DAILY
     Route: 048

REACTIONS (1)
  - Malaise [Unknown]
